FAERS Safety Report 9443419 (Version 2)
Quarter: 2013Q3

REPORT INFORMATION
  Report Type: Spontaneous
  Country: JP (occurrence: JP)
  Receive Date: 20130806
  Receipt Date: 20130828
  Transmission Date: 20140515
  Serious: No
  Sender: FDA-Public Use
  Company Number: JP-GLAXOSMITHKLINE-B0912564A

PATIENT
  Age: 29 Year
  Sex: Female

DRUGS (14)
  1. LAMICTAL [Suspect]
     Indication: SCHIZOPHRENIA
     Dosage: 25MG PER DAY
     Route: 048
     Dates: start: 20130711, end: 20130711
  2. LAMICTAL [Suspect]
     Indication: SCHIZOPHRENIA
     Dosage: 50MG PER DAY
     Route: 048
     Dates: start: 20130712, end: 20130714
  3. LAMICTAL [Suspect]
     Indication: SCHIZOPHRENIA
     Dosage: 50MG TWICE PER DAY
     Route: 048
     Dates: start: 20130715, end: 20130717
  4. LAMICTAL [Suspect]
     Indication: SCHIZOPHRENIA
     Dosage: 75MG TWICE PER DAY
     Route: 048
     Dates: start: 20130718, end: 20130718
  5. LAMICTAL [Suspect]
     Indication: SCHIZOPHRENIA
     Dosage: 50MG TWICE PER DAY
     Route: 048
     Dates: start: 20130719, end: 20130721
  6. LAMICTAL [Suspect]
     Indication: SCHIZOPHRENIA
     Route: 048
     Dates: start: 20130722, end: 20130724
  7. LAMICTAL [Suspect]
     Indication: SCHIZOPHRENIA
     Dosage: 25MG TWICE PER DAY
     Route: 048
     Dates: start: 20130725, end: 20130725
  8. DEPAKENE-R [Concomitant]
     Dosage: 400MG THREE TIMES PER DAY
     Route: 048
     Dates: start: 20130711
  9. LIMAS [Concomitant]
     Route: 048
     Dates: start: 20130711, end: 20130711
  10. LIMAS [Concomitant]
     Route: 048
     Dates: start: 20130712, end: 20130714
  11. LIMAS [Concomitant]
     Route: 048
     Dates: start: 20130715, end: 20130717
  12. LIMAS [Concomitant]
     Route: 048
     Dates: start: 20130718, end: 20130718
  13. LIMAS [Concomitant]
     Route: 048
     Dates: start: 20130719, end: 20130721
  14. LIMAS [Concomitant]
     Dosage: 100MG TWICE PER DAY
     Route: 048
     Dates: start: 20130722, end: 20130725

REACTIONS (6)
  - Erythema [Recovering/Resolving]
  - Eczema [Recovering/Resolving]
  - Pyrexia [Unknown]
  - Rash [Recovering/Resolving]
  - Rash [Recovering/Resolving]
  - Drug eruption [Recovering/Resolving]
